FAERS Safety Report 13602271 (Version 2)
Quarter: 2017Q2

REPORT INFORMATION
  Report Type: Spontaneous
  Country: US (occurrence: US)
  Receive Date: 20170601
  Receipt Date: 20170614
  Transmission Date: 20170830
  Serious: Yes (Other)
  Sender: FDA-Public Use
  Company Number: US-PFIZER INC-2017240066

PATIENT
  Age: 77 Year
  Sex: Female

DRUGS (4)
  1. HEPARIN SODIUM. [Suspect]
     Active Substance: HEPARIN SODIUM
     Indication: ATRIAL FIBRILLATION
     Dosage: UNK
     Route: 042
  2. ASPIRIN. [Suspect]
     Active Substance: ASPIRIN
     Indication: AORTIC VALVE REPLACEMENT
  3. ASPIRIN. [Suspect]
     Active Substance: ASPIRIN
     Indication: CEREBROVASCULAR ACCIDENT
     Dosage: 81 MG, UNK
  4. ASPIRIN. [Suspect]
     Active Substance: ASPIRIN
     Indication: VASCULAR GRAFT
     Dosage: UNK (RESTARTED ON POSTOPERATIVE DAY 18)

REACTIONS (2)
  - Retroperitoneal haematoma [Recovered/Resolved]
  - Neuropathy peripheral [Recovered/Resolved]
